FAERS Safety Report 12081074 (Version 2)
Quarter: 2016Q1

REPORT INFORMATION
  Report Type: Spontaneous
  Country: CA (occurrence: CA)
  Receive Date: 20160216
  Receipt Date: 20160224
  Transmission Date: 20160526
  Serious: Yes (Other)
  Sender: FDA-Public Use
  Company Number: CA-TEVA-634645USA

PATIENT
  Age: 70 Year
  Sex: Female

DRUGS (27)
  1. GABAPENTIN. [Suspect]
     Active Substance: GABAPENTIN
     Route: 065
  2. HYDROMORPHONE [Concomitant]
     Active Substance: HYDROMORPHONE
     Route: 048
  3. EZETIMIBE. [Suspect]
     Active Substance: EZETIMIBE
     Route: 065
  4. GEMCITABINE [Concomitant]
     Active Substance: GEMCITABINE\GEMCITABINE HYDROCHLORIDE
     Indication: ADENOCARCINOMA PANCREAS
     Dosage: WEEKLY THREE OUT OF FOUR WEEKS FOR EIGHT CYCLES.
  5. ESOMEPRAZOLE [Concomitant]
     Active Substance: ESOMEPRAZOLE
     Route: 048
  6. IRBESARTAN. [Concomitant]
     Active Substance: IRBESARTAN
     Route: 048
  7. RANITIDINE [Suspect]
     Active Substance: RANITIDINE\RANITIDINE HYDROCHLORIDE
     Route: 065
  8. PRILOCAINE [Suspect]
     Active Substance: PRILOCAINE
  9. GATIFLOXACIN. [Suspect]
     Active Substance: GATIFLOXACIN
     Route: 065
  10. INSULIN [Concomitant]
     Active Substance: INSULIN NOS
  11. CELECOXIB. [Suspect]
     Active Substance: CELECOXIB
     Route: 065
  12. MELOXICAM. [Suspect]
     Active Substance: MELOXICAM
     Route: 065
  13. PANCREALIPASE [Concomitant]
     Active Substance: PANCRELIPASE
     Route: 048
  14. FENOFIBRATE. [Concomitant]
     Active Substance: FENOFIBRATE
     Route: 048
  15. MORPHINE [Suspect]
     Active Substance: MORPHINE
     Dosage: AVERAGE MORPHINE EQUIVALENT DAILY DOSE WAS 25 MG
     Route: 065
  16. RAMIPRIL. [Suspect]
     Active Substance: RAMIPRIL
     Route: 065
  17. CODEINE [Suspect]
     Active Substance: CODEINE
     Route: 065
  18. METFORMIN [Suspect]
     Active Substance: METFORMIN HYDROCHLORIDE
     Route: 065
  19. ATORVASTATIN [Suspect]
     Active Substance: ATORVASTATIN
     Route: 065
  20. NAPROXEN. [Suspect]
     Active Substance: NAPROXEN
     Route: 065
  21. GLICLAZIDE [Suspect]
     Active Substance: GLICLAZIDE
     Route: 065
  22. INSULIN GLARGINE [Concomitant]
     Active Substance: INSULIN GLARGINE
     Dosage: DAILY AT BED TIME
  23. TOPIRAMATE. [Suspect]
     Active Substance: TOPIRAMATE
     Route: 065
  24. GLYBURIDE. [Suspect]
     Active Substance: GLYBURIDE
     Route: 065
  25. MOXIFLOXACIN. [Suspect]
     Active Substance: MOXIFLOXACIN
     Route: 065
  26. ROFECOXIB [Suspect]
     Active Substance: ROFECOXIB
     Route: 065
  27. HYDROMORPHONE [Concomitant]
     Active Substance: HYDROMORPHONE
     Route: 048

REACTIONS (2)
  - Drug intolerance [Unknown]
  - Anaphylactic reaction [Unknown]
